FAERS Safety Report 5122469-X (Version None)
Quarter: 2006Q4

REPORT INFORMATION
  Report Type: 
  Country: None (occurrence: None)
  Receive Date: 20061004
  Receipt Date: 20060918
  Transmission Date: 20070319
  Serious: Yes (Hospitalization)
  Sender: FDA-Public Use
  Company Number: DSA_28737_2006

PATIENT
  Age: 83 Year
  Sex: Female
  Weight: 48 kg

DRUGS (8)
  1. LORAZEPAM [Suspect]
     Dosage: DF PO
     Route: 048
  2. STUDY DRUG/TIPIFARNIB [Suspect]
     Indication: ACUTE MYELOID LEUKAEMIA
     Dosage: 1200 MG Q DAY PO
     Route: 048
     Dates: start: 20030121, end: 20030213
  3. AZITHROMYCIN [Concomitant]
  4. LEVOFLOXACIN [Concomitant]
  5. VANCOMYCIN [Concomitant]
  6. BACITRACIN [Concomitant]
  7. CEFEPIME [Concomitant]
  8. GATIFLOXACIN [Concomitant]

REACTIONS (5)
  - CONTUSION [None]
  - COORDINATION ABNORMAL [None]
  - DIZZINESS [None]
  - FALL [None]
  - GAIT DISTURBANCE [None]
